FAERS Safety Report 9253878 (Version 1)
Quarter: 2013Q1

REPORT INFORMATION
  Report Type: Spontaneous
  Country: US (occurrence: None)
  Receive Date: 20121203
  Receipt Date: 20121203
  Transmission Date: 20140127
  Serious: Yes (Hospitalization, Disabling)
  Sender: FDA-Public Use
  Company Number: 2011SP000226

PATIENT
  Age: 26 Year
  Sex: Female
  Weight: 99.8 kg

DRUGS (2)
  1. NUVARING [Suspect]
     Indication: CONTRACEPTION
     Dates: start: 2004, end: 2006
  2. MINERALS + VITAMINS [Concomitant]

REACTIONS (4)
  - Deep vein thrombosis [None]
  - Pain [None]
  - Chest pain [None]
  - Hypoprothrombinaemia [None]
